FAERS Safety Report 16430972 (Version 1)
Quarter: 2019Q2

REPORT INFORMATION
  Report Type: Spontaneous
  Country: US (occurrence: US)
  Receive Date: 20190614
  Receipt Date: 20190614
  Transmission Date: 20190711
  Serious: Yes (Other)
  Sender: FDA-Public Use
  Company Number: US-ASTELLAS-2019US024344

PATIENT
  Sex: Male

DRUGS (1)
  1. XTANDI [Suspect]
     Active Substance: ENZALUTAMIDE
     Indication: PRODUCT USED FOR UNKNOWN INDICATION
     Route: 065

REACTIONS (7)
  - Foreign body in respiratory tract [Unknown]
  - Fatigue [Not Recovered/Not Resolved]
  - Product use complaint [Unknown]
  - Feeling abnormal [Not Recovered/Not Resolved]
  - Malignant neoplasm progression [Unknown]
  - Fall [Unknown]
  - Hypersomnia [Not Recovered/Not Resolved]
